FAERS Safety Report 6180639-6 (Version None)
Quarter: 2009Q2

REPORT INFORMATION
  Report Type: 
  Country: None (occurrence: None)
  Receive Date: 20090506
  Receipt Date: 20090430
  Transmission Date: 20091009
  Serious: Yes (Hospitalization, Other)
  Sender: FDA-Public Use
  Company Number: EE-AVENTIS-200911746EU

PATIENT
  Age: 64 Year
  Sex: Male

DRUGS (50)
  1. ENOXAPARIN SODIUM [Suspect]
     Route: 058
     Dates: start: 20090218, end: 20090227
  2. PROTEINASE INHIBITORS [Suspect]
     Route: 048
     Dates: start: 20090218, end: 20090305
  3. MAGNESIUM SULFATE [Concomitant]
     Route: 042
     Dates: start: 20090218, end: 20090218
  4. RINGER                             /01179901/ [Concomitant]
     Route: 042
     Dates: start: 20090217, end: 20090217
  5. RINGER                             /01179901/ [Concomitant]
     Route: 042
     Dates: start: 20090218, end: 20090218
  6. K CL TAB [Concomitant]
     Route: 042
     Dates: start: 20090218, end: 20090218
  7. K CL TAB [Concomitant]
     Dosage: DOSE: UNK
     Route: 042
     Dates: start: 20090313, end: 20090321
  8. K CL TAB [Concomitant]
     Route: 042
     Dates: start: 20090218, end: 20090218
  9. K CL TAB [Concomitant]
     Dosage: DOSE: UNK
     Route: 042
     Dates: start: 20090313, end: 20090321
  10. TRIFAS                             /01036501/ [Concomitant]
     Route: 048
     Dates: start: 20090220, end: 20090101
  11. IMDUR [Concomitant]
     Route: 048
     Dates: start: 20090120, end: 20090101
  12. METOPROLOL TARTRATE [Concomitant]
     Indication: TACHYCARDIA
     Route: 048
     Dates: start: 20090217, end: 20090218
  13. METOPROLOL TARTRATE [Concomitant]
     Route: 048
     Dates: start: 20090219, end: 20090101
  14. METOPROLOL TARTRATE [Concomitant]
     Route: 042
     Dates: start: 20090217, end: 20090217
  15. METOPROLOL TARTRATE [Concomitant]
     Route: 048
     Dates: start: 20090217, end: 20090218
  16. METOPROLOL TARTRATE [Concomitant]
     Route: 048
     Dates: start: 20090219, end: 20090101
  17. METOPROLOL TARTRATE [Concomitant]
     Route: 042
     Dates: start: 20090217, end: 20090217
  18. CRESTOR [Concomitant]
     Route: 048
     Dates: start: 20090217, end: 20090223
  19. IMOVANE [Concomitant]
     Route: 048
     Dates: start: 20090217, end: 20090227
  20. NOLPAZA (PANTOPRAZOLE) [Concomitant]
     Indication: PROPHYLAXIS
     Route: 048
     Dates: start: 20090219, end: 20090228
  21. NOLPAZA (PANTOPRAZOLE) [Concomitant]
     Route: 048
     Dates: start: 20090313, end: 20090315
  22. MAGNEX [Concomitant]
     Route: 048
     Dates: start: 20090217, end: 20090228
  23. LASIX [Concomitant]
     Route: 048
     Dates: start: 20090217, end: 20090218
  24. ASPIRIN [Concomitant]
     Route: 048
     Dates: start: 19990805, end: 20090217
  25. AERIUS                             /01398501/ [Concomitant]
     Indication: DERMATITIS
     Route: 048
     Dates: start: 20090217, end: 20090217
  26. AERIUS                             /01398501/ [Concomitant]
     Route: 048
     Dates: start: 20090313, end: 20090315
  27. AMINOFYLLINE [Concomitant]
     Route: 042
     Dates: start: 20090217, end: 20090217
  28. AMINOFYLLINE [Concomitant]
     Route: 042
     Dates: start: 20090313, end: 20090315
  29. LASIX LONG [Concomitant]
     Route: 048
     Dates: start: 20080101, end: 20090217
  30. CARDACE                            /00885601/ [Concomitant]
     Route: 048
     Dates: start: 19990805, end: 20090217
  31. DIGOXIN [Concomitant]
     Route: 048
     Dates: start: 20080101, end: 20090216
  32. SPIRIX [Concomitant]
     Route: 048
     Dates: start: 20080101, end: 20090217
  33. SPIRIX [Concomitant]
     Route: 048
     Dates: start: 20090313, end: 20090315
  34. VITAMINS, OTHER COMBINATIONS [Concomitant]
     Route: 042
     Dates: start: 20090313, end: 20090313
  35. PREDNISOLONE [Concomitant]
     Route: 042
     Dates: start: 20090313, end: 20090320
  36. VIT. B1 [Concomitant]
     Route: 042
     Dates: start: 20090313, end: 20090320
  37. VIT. B6 [Concomitant]
     Route: 042
     Dates: start: 20090313, end: 20090320
  38. DIMEDROL                           /00000401/ [Concomitant]
     Indication: DERMATITIS
     Route: 042
     Dates: start: 20090313, end: 20090313
  39. OMEPRAZOL [Concomitant]
     Indication: PROPHYLAXIS
     Route: 048
     Dates: start: 20090320, end: 20090320
  40. CARSIL [Concomitant]
     Route: 048
     Dates: start: 20090313, end: 20090320
  41. GLUCOSAE 5% [Concomitant]
     Route: 042
     Dates: start: 20090313, end: 20090314
  42. GLUCOSAE 5% [Concomitant]
     Route: 042
     Dates: start: 20090315, end: 20090319
  43. GLUCOSAE 5% [Concomitant]
     Route: 042
     Dates: start: 20090320, end: 20090321
  44. ALBUMIN (HUMAN) [Concomitant]
     Route: 042
     Dates: start: 20090316, end: 20090316
  45. AXETINE                            /00454602/ [Concomitant]
     Indication: DERMATITIS
     Route: 042
     Dates: start: 20090316, end: 20090320
  46. ARIXTRA [Concomitant]
     Indication: THROMBOCYTOPENIA
     Route: 058
     Dates: start: 20090319, end: 20090320
  47. UNASYN ORAL                        /00903601/ [Concomitant]
     Indication: DERMATITIS
     Route: 048
     Dates: start: 20090320, end: 20090320
  48. CALCIUM, COMBINATIONS WITH OTHER DRUGS [Concomitant]
     Route: 048
     Dates: start: 20090319, end: 20090320
  49. TROMBOCYTID (PLATELETS, HUMAN BLOOD) [Concomitant]
     Indication: THROMBOCYTOPENIA
     Route: 042
     Dates: start: 20090320, end: 20090320
  50. XANAX [Concomitant]
     Indication: NEUROSIS
     Route: 048
     Dates: start: 20090317, end: 20090317

REACTIONS (8)
  - ASTHENIA [None]
  - CHROMATURIA [None]
  - CONFUSIONAL STATE [None]
  - HEPATIC ENZYME INCREASED [None]
  - JAUNDICE [None]
  - RASH [None]
  - SPIDER NAEVUS [None]
  - THROMBOCYTOPENIA [None]
